FAERS Safety Report 5506541-8 (Version None)
Quarter: 2007Q4

REPORT INFORMATION
  Report Type: 
  Country: None (occurrence: None)
  Receive Date: 20071101
  Receipt Date: 20071019
  Transmission Date: 20080405
  Serious: Yes (Other)
  Sender: FDA-Public Use
  Company Number: MC200700674

PATIENT
  Age: 71 Year
  Sex: Male
  Weight: 81.2 kg

DRUGS (3)
  1. ANGIOMAX [Suspect]
     Indication: PERCUTANEOUS CORONARY INTERVENTION
     Dosage: 0.75 MG/KG, BOLUS, IV BOLUS; 0.75 MG/KG, HR, INTRAVENOUS
     Route: 042
  2. PLAVIX [Suspect]
     Dosage: 600 MG, SINGLE LOADING DOSE,
  3. COUMADIN [Concomitant]

REACTIONS (2)
  - COAGULATION TIME PROLONGED [None]
  - OVERDOSE [None]
